FAERS Safety Report 5500549-4 (Version None)
Quarter: 2007Q4

REPORT INFORMATION
  Report Type: 
  Country: None (occurrence: None)
  Receive Date: 20071029
  Receipt Date: 20071017
  Transmission Date: 20080405
  Serious: Yes (Hospitalization)
  Sender: FDA-Public Use
  Company Number: JP-AMGEN-US249548

PATIENT
  Age: 86 Year
  Sex: Female

DRUGS (2)
  1. ENBREL [Suspect]
     Indication: RHEUMATOID ARTHRITIS
     Route: 058
     Dates: start: 20070825, end: 20070928
  2. ISCOTIN [Suspect]
     Dosage: UNKNOWN DOSE AND FREQUENCY
     Route: 065
     Dates: start: 20070701, end: 20070928

REACTIONS (3)
  - CONDITION AGGRAVATED [None]
  - JAUNDICE [None]
  - RHEUMATOID ARTHRITIS [None]
